FAERS Safety Report 17409167 (Version 1)
Quarter: 2020Q1

REPORT INFORMATION
  Report Type: Spontaneous
  Country: JP (occurrence: JP)
  Receive Date: 20200212
  Receipt Date: 20200212
  Transmission Date: 20200409
  Serious: Yes (Hospitalization)
  Sender: FDA-Public Use
  Company Number: JP-EISAI MEDICAL RESEARCH-EC-2020-069724

PATIENT
  Sex: Female

DRUGS (1)
  1. LENVIMA [Suspect]
     Active Substance: LENVATINIB
     Indication: HEPATOCELLULAR CARCINOMA
     Dosage: DOSAGE UNKNOWN; 5 DAYS ON, 2 DAYS OFF
     Route: 048

REACTIONS (2)
  - Malaise [Unknown]
  - Dysphonia [Unknown]

NARRATIVE: CASE EVENT DATE: 20200130
